FAERS Safety Report 7462043-3 (Version None)
Quarter: 2011Q2

REPORT INFORMATION
  Report Type: 
  Country: None (occurrence: None)
  Receive Date: 20110506
  Receipt Date: 20091220
  Transmission Date: 20111010
  Serious: Yes (Death, Other)
  Sender: FDA-Public Use
  Company Number: US-BAYER-200943153NA

PATIENT
  Age: 77 Year
  Sex: Female
  Weight: 72.562 kg

DRUGS (28)
  1. MEVACOR [Concomitant]
     Dosage: 10 MG, HS
     Route: 048
  2. FERROUS SULFATE TAB [Concomitant]
     Dosage: 325 MG, TID
     Route: 048
  3. FENTANYL [Concomitant]
     Dosage: 30 ML, UNK
     Route: 042
     Dates: start: 20060314
  4. OXYBUTYNIN [Concomitant]
     Dosage: 5 MG, TID
     Route: 048
  5. ATENOLOL [Concomitant]
     Dosage: 50 MG, QD
     Route: 048
  6. RED BLOOD CELLS [Concomitant]
     Dosage: UNK
     Route: 042
     Dates: start: 20060314
  7. FLUOXETINE [Concomitant]
     Dosage: 20 MG, QD
     Route: 048
  8. ESTRADIOL [Concomitant]
     Dosage: 100 MG, QD
     Route: 048
  9. TRASYLOL [Suspect]
     Indication: AORTIC VALVE REPLACEMENT
     Dosage: 200 ML, (PRIME)
     Route: 042
     Dates: start: 20060314, end: 20060314
  10. PLAVIX [Concomitant]
     Dosage: 75 MG, QD
     Route: 048
  11. ANCEF [Concomitant]
     Dosage: UNK
     Route: 042
     Dates: start: 20060314
  12. PAVULON [Concomitant]
     Dosage: 10 UNK
     Route: 042
     Dates: start: 20060314
  13. NOVOLIN N [Concomitant]
     Dosage: 20 U, HS
     Route: 058
  14. METFORMIN [Concomitant]
     Dosage: 850 MG, TID
     Route: 048
  15. TOLINASE [Concomitant]
     Dosage: 500 MG, BID
     Route: 048
  16. MAGNESIUM [Concomitant]
     Dosage: UNK
     Route: 042
     Dates: start: 20060314
  17. PROTAMINE SULFATE [Concomitant]
     Dosage: UNK
     Dates: start: 20060314
  18. PROPOFOL [Concomitant]
     Dosage: UNK
     Route: 042
     Dates: start: 20060314
  19. TRASYLOL [Suspect]
     Dosage: 50 ML/HR (INFUSION)
     Route: 042
     Dates: start: 20060314, end: 20060314
  20. MAXZIDE [Concomitant]
     Dosage: 75/50, 1/2 TABLET DAILY
     Route: 048
  21. LORATADINE [Concomitant]
     Dosage: 10 MG, QD
     Route: 048
  22. INSULIN [Concomitant]
     Dosage: UNK
     Route: 042
     Dates: start: 20060314
  23. HEPARIN [Concomitant]
     Dosage: UNK
     Route: 042
     Dates: start: 20060314
  24. NEOSTIGMINE [Concomitant]
     Dosage: UNK
     Route: 042
     Dates: start: 20060314
  25. ETOMIDATE [Concomitant]
     Dosage: 20 UNK
     Route: 042
     Dates: start: 20060314
  26. TRASYLOL [Suspect]
     Dosage: 200 ML (LOADING)
     Route: 042
     Dates: start: 20060314, end: 20060314
  27. ZESTRIL [Concomitant]
     Dosage: 40 MG, QD
     Route: 048
  28. MORPHINE [Concomitant]
     Dosage: 15 MG, UNK
     Route: 042
     Dates: start: 20060314

REACTIONS (8)
  - DEATH [None]
  - RENAL FAILURE ACUTE [None]
  - INJURY [None]
  - UNEVALUABLE EVENT [None]
  - PAIN [None]
  - CARDIAC FAILURE CONGESTIVE [None]
  - RENAL FAILURE [None]
  - DEPRESSION [None]
